FAERS Safety Report 6212986-3 (Version None)
Quarter: 2009Q2

REPORT INFORMATION
  Report Type: 
  Country: None (occurrence: None)
  Receive Date: 20090602
  Receipt Date: 20090602
  Transmission Date: 20091009
  Serious: Yes (Hospitalization)
  Sender: FDA-Public Use
  Company Number: None

PATIENT
  Sex: Male
  Weight: 81 kg

DRUGS (7)
  1. SUNITINIB [Suspect]
     Indication: RENAL CANCER METASTATIC
     Dosage: 50 MG DAILY ORAL
     Route: 048
     Dates: start: 20090127, end: 20090521
  2. ASCORBIC ACID [Concomitant]
  3. LIDINOPTIL/HCTZ [Concomitant]
  4. DOCUSATE SODIUM [Concomitant]
  5. ANUSOL HC [Concomitant]
  6. CLARITIN [Concomitant]
  7. TEGRETOL [Concomitant]

REACTIONS (2)
  - ANAEMIA [None]
  - HAEMATURIA [None]
